FAERS Safety Report 5627296-2 (Version None)
Quarter: 2008Q1

REPORT INFORMATION
  Report Type: 
  Country: None (occurrence: None)
  Receive Date: 20080215
  Receipt Date: 20080205
  Transmission Date: 20080703
  Serious: Yes (Hospitalization, Other)
  Sender: FDA-Public Use
  Company Number: JP-BAYER-200710910BYL

PATIENT
  Age: 55 Year
  Sex: Male
  Weight: 66 kg

DRUGS (4)
  1. AVELOX [Suspect]
     Indication: NASOPHARYNGITIS
     Dosage: TOTAL DAILY DOSE: 400 MG  UNIT DOSE: 400 MG
     Route: 048
     Dates: start: 20071115, end: 20071120
  2. LOXONIN [Suspect]
     Indication: NASOPHARYNGITIS
     Dosage: UNIT DOSE: 60 MG
     Route: 048
     Dates: start: 20071115, end: 20071120
  3. PL [Concomitant]
     Indication: NASOPHARYNGITIS
     Route: 048
     Dates: start: 20071115, end: 20071120
  4. MUCOSTA [Concomitant]
     Indication: NASOPHARYNGITIS
     Dosage: UNIT DOSE: 100 MG
     Route: 048
     Dates: start: 20071115, end: 20071120

REACTIONS (6)
  - CONJUNCTIVAL HYPERAEMIA [None]
  - DIARRHOEA [None]
  - LIP SWELLING [None]
  - ORAL MUCOSA EROSION [None]
  - PAIN IN EXTREMITY [None]
  - PYREXIA [None]
